FAERS Safety Report 5576314-9 (Version None)
Quarter: 2007Q4

REPORT INFORMATION
  Report Type: 
  Country: None (occurrence: None)
  Receive Date: 20071228
  Receipt Date: 20071220
  Transmission Date: 20080405
  Serious: Yes (Hospitalization, Other)
  Sender: FDA-Public Use
  Company Number: PHFR2007GB01808

PATIENT
  Age: 27 Year
  Sex: Male

DRUGS (9)
  1. CLOZARIL [Suspect]
     Indication: SCHIZOPHRENIA
     Dosage: 450 MG, QD
     Route: 048
     Dates: start: 20011003
  2. CLOZARIL [Suspect]
     Dosage: 6100MG
     Route: 048
     Dates: start: 20070604, end: 20070604
  3. COCAINE [Suspect]
  4. RANITIDINE HCL [Suspect]
     Dosage: 150 MG, BID
     Route: 048
  5. RANITIDINE HCL [Suspect]
     Dosage: 1050MG
     Route: 048
     Dates: start: 20070604
  6. HYOSCINE [Suspect]
     Dosage: 300 UG, BID
     Route: 048
  7. HYOSCINE [Suspect]
     Dosage: 210MG
     Route: 048
     Dates: start: 20070604
  8. VALPROATE SODIUM [Suspect]
     Indication: MOOD ALTERED
     Dosage: 800 MG, BID
     Route: 048
  9. VALPROATE SODIUM [Suspect]
     Dosage: 9600MG
     Route: 048

REACTIONS (10)
  - BLOOD CREATINE PHOSPHOKINASE INCREASED [None]
  - C-REACTIVE PROTEIN INCREASED [None]
  - HYPOXIA [None]
  - LOWER RESPIRATORY TRACT INFECTION [None]
  - OVERDOSE [None]
  - PYREXIA [None]
  - RENAL FAILURE ACUTE [None]
  - SOMNOLENCE [None]
  - TACHYCARDIA [None]
  - THROMBOCYTOPENIA [None]
